FAERS Safety Report 9412636 (Version 2)
Quarter: 2013Q3

REPORT INFORMATION
  Report Type: Spontaneous
  Country: US (occurrence: US)
  Receive Date: 20130722
  Receipt Date: 20130823
  Transmission Date: 20140515
  Serious: Yes (Other)
  Sender: FDA-Public Use
  Company Number: US-PFIZER INC-2013212143

PATIENT
  Age: 58 Year
  Sex: Female
  Weight: 78.46 kg

DRUGS (4)
  1. LIPITOR [Suspect]
     Indication: BLOOD CHOLESTEROL INCREASED
     Dosage: 20 MG ONCE A DAY
     Route: 048
     Dates: end: 20130715
  2. NAPROSYN [Concomitant]
     Dosage: 500, 3XDAY
     Route: 048
  3. FLEXERIL [Concomitant]
     Dosage: 10, 3XDAY
     Route: 048
  4. ASA [Concomitant]
     Dosage: UNK

REACTIONS (17)
  - Hypersensitivity [Unknown]
  - Ocular icterus [Unknown]
  - Rheumatoid arthritis [Unknown]
  - Road traffic accident [Unknown]
  - Haemorrhage [Unknown]
  - Ocular hyperaemia [Unknown]
  - Weight decreased [Unknown]
  - Neck pain [Unknown]
  - Back pain [Unknown]
  - Pain in extremity [Unknown]
  - Dyspnoea [Unknown]
  - Diarrhoea [Unknown]
  - Constipation [Unknown]
  - Contusion [Unknown]
  - Musculoskeletal pain [Unknown]
  - Musculoskeletal stiffness [Unknown]
  - Tenderness [Unknown]
